FAERS Safety Report 17004800 (Version 2)
Quarter: 2019Q4

REPORT INFORMATION
  Report Type: Spontaneous
  Country: TR (occurrence: TR)
  Receive Date: 20191107
  Receipt Date: 20191113
  Transmission Date: 20200122
  Serious: Yes (Other)
  Sender: FDA-Public Use
  Company Number: TR-PFIZER INC-2019475656

PATIENT
  Age: 7 Month
  Sex: Male

DRUGS (6)
  1. PREDNISOLONE. [Concomitant]
     Active Substance: PREDNISOLONE
     Indication: HAEMANGIOMA OF LIVER
     Dosage: UNK (FOR 3 MONTHS AS TREATMENT, THEN CONTINUED FOR 10 WEEKS)
  2. INTERFERON ALFA NOS [Concomitant]
     Active Substance: INTERFERON ALFA-2A OR INTERFERON ALFA-2B
     Indication: HAEMANGIOMA OF LIVER
     Dosage: UNK (FOR 3 MONTHS AS TREATMENT FOR AN IHH)
  3. VINCRISTINE SULFATE. [Suspect]
     Active Substance: VINCRISTINE SULFATE
     Indication: HAEMANGIOMA OF LIVER
     Dosage: 0.04 MG/KG, WEEKLY
  4. VINCRISTINE SULFATE. [Suspect]
     Active Substance: VINCRISTINE SULFATE
     Dosage: 0.065 MG/KG, WEEKLY (DOSE WAS INCREASED)
  5. VINCRISTINE SULFATE. [Suspect]
     Active Substance: VINCRISTINE SULFATE
     Dosage: UNK (DOSE WAS REDUCED BY 50%)
  6. METHYLPREDNISOLONE ACETATE. [Concomitant]
     Active Substance: METHYLPREDNISOLONE ACETATE
     Indication: HAEMANGIOMA OF LIVER
     Dosage: UNK (SECOND COURSE OF HIGH-DOSE)

REACTIONS (3)
  - Product use in unapproved indication [Unknown]
  - Off label use [Unknown]
  - Neuropathy peripheral [Unknown]
